FAERS Safety Report 19276533 (Version 5)
Quarter: 2022Q2

REPORT INFORMATION
  Report Type: Other
  Country: JP (occurrence: JP)
  Receive Date: 20210520
  Receipt Date: 20220526
  Transmission Date: 20220721
  Serious: Yes (Other)
  Sender: FDA-Public Use
  Company Number: JP-CHUGAI-2021000915AA

PATIENT
  Age: 75 Year
  Sex: Male
  Weight: 71 kg

DRUGS (7)
  1. ATEZOLIZUMAB [Suspect]
     Active Substance: ATEZOLIZUMAB
     Indication: Small cell lung cancer extensive stage
     Route: 041
     Dates: start: 20210209, end: 20210209
  2. ATEZOLIZUMAB [Suspect]
     Active Substance: ATEZOLIZUMAB
     Route: 041
     Dates: start: 20210309, end: 20210406
  3. CARBOPLATIN [Suspect]
     Active Substance: CARBOPLATIN
     Indication: Lung adenocarcinoma
     Dosage: 510 MILLIGRAM, QD
     Route: 041
     Dates: start: 20210209, end: 20210209
  4. CARBOPLATIN [Suspect]
     Active Substance: CARBOPLATIN
     Route: 041
     Dates: start: 20210309, end: 20210309
  5. CARBOPLATIN [Suspect]
     Active Substance: CARBOPLATIN
     Dosage: 382 MILLIGRAM, QD
     Route: 041
     Dates: start: 20210406, end: 20210406
  6. PACLITAXEL [Suspect]
     Active Substance: PACLITAXEL
     Indication: Lung adenocarcinoma
     Dosage: 176 MILLIGRAM
     Route: 041
     Dates: start: 20210209
  7. PACLITAXEL [Suspect]
     Active Substance: PACLITAXEL
     Route: 041
     Dates: start: 20210309, end: 20210316

REACTIONS (2)
  - Pulmonary toxicity [Recovering/Resolving]
  - Neutrophil count decreased [Recovered/Resolved]

NARRATIVE: CASE EVENT DATE: 20210222
